FAERS Safety Report 7342470-5 (Version None)
Quarter: 2011Q1

REPORT INFORMATION
  Report Type: 
  Country: None (occurrence: None)
  Receive Date: 20110310
  Receipt Date: 20110301
  Transmission Date: 20110831
  Serious: No
  Sender: FDA-Public Use
  Company Number: US-PFIZER INC-2011024484

PATIENT
  Sex: Female
  Weight: 86.168 kg

DRUGS (5)
  1. TOVIAZ [Suspect]
     Indication: HYPERTONIC BLADDER
     Dosage: 8 MG, DAILY
     Route: 048
  2. SYNTHROID [Concomitant]
     Indication: THYROID DISORDER
     Dosage: UNK
  3. NIASPAN [Concomitant]
     Indication: BLOOD CHOLESTEROL
     Dosage: UNK
  4. AVAPRO [Concomitant]
     Indication: HYPERTENSION
     Dosage: UNK
  5. WELCHOL [Concomitant]
     Indication: BLOOD CHOLESTEROL
     Dosage: UNK

REACTIONS (1)
  - SLEEP DISORDER [None]
